FAERS Safety Report 12492191 (Version 5)
Quarter: 2017Q1

REPORT INFORMATION
  Report Type: Report from Study
  Country: TW (occurrence: TW)
  Receive Date: 20160623
  Receipt Date: 20170110
  Transmission Date: 20170428
  Serious: Yes (Life-Threatening, Other)
  Sender: FDA-Public Use
  Company Number: TW-CELGENEUS-TWN-2016052487

PATIENT
  Age: 74 Year
  Sex: Male
  Weight: 51 kg

DRUGS (14)
  1. CELECOXIB. [Concomitant]
     Active Substance: CELECOXIB
     Indication: BONE PAIN
     Route: 065
     Dates: start: 20160314, end: 20160506
  2. CARBOPLATIN. [Suspect]
     Active Substance: CARBOPLATIN
     Indication: NON-SMALL CELL LUNG CANCER STAGE IV
     Dosage: 480 MG
     Route: 041
     Dates: start: 20160411
  3. ACETYLCYSTEINE. [Concomitant]
     Active Substance: ACETYLCYSTEINE
     Indication: COUGH
     Route: 065
     Dates: start: 20160314
  4. CO-DIOVAN [Concomitant]
     Active Substance: HYDROCHLOROTHIAZIDE\VALSARTAN
     Indication: HYPERTENSION
     Route: 065
     Dates: start: 20160509
  5. AMLODIPINE BESILATE [Concomitant]
     Active Substance: AMLODIPINE BESYLATE
     Indication: HYPERTENSION
     Route: 065
     Dates: start: 20160605, end: 20160606
  6. NIFEDIPINE. [Concomitant]
     Active Substance: NIFEDIPINE
     Indication: HYPERTENSION
     Route: 065
     Dates: end: 20160418
  7. CARBOPLATIN. [Suspect]
     Active Substance: CARBOPLATIN
     Dosage: 480 MG
     Route: 041
     Dates: end: 20160527
  8. BISACODYL. [Concomitant]
     Active Substance: BISACODYL
     Indication: CONSTIPATION
     Route: 065
     Dates: start: 20160509
  9. DIPHENHYDRAMINE HYDROCHLORIDE. [Concomitant]
     Active Substance: DIPHENHYDRAMINE HYDROCHLORIDE
     Indication: CONSTIPATION
     Route: 065
     Dates: start: 20160411
  10. TAZOCIN [Concomitant]
     Active Substance: PIPERACILLIN SODIUM\TAZOBACTAM SODIUM
     Indication: PRODUCT USED FOR UNKNOWN INDICATION
     Route: 065
     Dates: end: 20160526
  11. ABRAXANE [Suspect]
     Active Substance: PACLITAXEL
     Dosage: 115 MG
     Route: 041
     Dates: end: 20160527
  12. DOXAZOSIN [Concomitant]
     Active Substance: DOXAZOSIN\DOXAZOSIN MESYLATE
     Indication: HYPERTENSION
     Route: 065
     Dates: start: 20160425
  13. ABRAXANE [Suspect]
     Active Substance: PACLITAXEL
     Indication: NON-SMALL CELL LUNG CANCER STAGE IV
     Dosage: 145 MG
     Route: 041
     Dates: start: 20160411
  14. BROTIZOLAM [Concomitant]
     Active Substance: BROTIZOLAM
     Indication: INSOMNIA
     Route: 065
     Dates: start: 20160528, end: 20160528

REACTIONS (3)
  - Interstitial lung disease [Not Recovered/Not Resolved]
  - Pyrexia [Recovered/Resolved]
  - Pyrexia [Recovered/Resolved]

NARRATIVE: CASE EVENT DATE: 20160503
